FAERS Safety Report 17236070 (Version 1)
Quarter: 2020Q1

REPORT INFORMATION
  Report Type: Spontaneous
  Country: ES (occurrence: ES)
  Receive Date: 20200106
  Receipt Date: 20200106
  Transmission Date: 20200409
  Serious: Yes (Hospitalization)
  Sender: FDA-Public Use
  Company Number: ES-EMD SERONO-E2B_90073784

PATIENT
  Age: 80 Year
  Sex: Female

DRUGS (5)
  1. ATROVENT [Concomitant]
     Active Substance: IPRATROPIUM BROMIDE
     Indication: PRODUCT USED FOR UNKNOWN INDICATION
  2. METFORMIN [Suspect]
     Active Substance: METFORMIN HYDROCHLORIDE
     Indication: DIABETES MELLITUS
     Route: 048
     Dates: start: 2018
  3. METFORMIN [Suspect]
     Active Substance: METFORMIN HYDROCHLORIDE
     Dosage: DOSE REDUCED
     Route: 048
  4. ATORVASTATINA [Concomitant]
     Active Substance: ATORVASTATIN
     Indication: PRODUCT USED FOR UNKNOWN INDICATION
  5. FUROSEMIDA                         /00032601/ [Concomitant]
     Active Substance: FUROSEMIDE
     Indication: PRODUCT USED FOR UNKNOWN INDICATION

REACTIONS (3)
  - Hypokalaemia [Recovered/Resolved]
  - Diarrhoea [Recovered/Resolved]
  - Chronic kidney disease [Recovered/Resolved]

NARRATIVE: CASE EVENT DATE: 20190226
